FAERS Safety Report 21096089 (Version 1)
Quarter: 2022Q3

REPORT INFORMATION
  Report Type: Spontaneous
  Country: AU (occurrence: AU)
  Receive Date: 20220718
  Receipt Date: 20220718
  Transmission Date: 20221026
  Serious: Yes (Hospitalization, Other)
  Sender: FDA-Public Use
  Company Number: AU-SCILEX PHARMACEUTICALS INC.-2022SCX00023

PATIENT
  Age: 48 Year
  Sex: Male

DRUGS (1)
  1. LIDOCAINE [Suspect]
     Active Substance: LIDOCAINE
     Indication: Laser therapy
     Dosage: GREATER THAN 300 G
     Route: 061

REACTIONS (2)
  - Neurotoxicity [Unknown]
  - Intentional product misuse [Unknown]
